FAERS Safety Report 8729648 (Version 2)
Quarter: 2015Q2

REPORT INFORMATION
  Report Type: Report from Study
  Country: US (occurrence: US)
  Receive Date: 20120817
  Receipt Date: 20150407
  Transmission Date: 20150821
  Serious: Yes (Other)
  Sender: FDA-Public Use
  Company Number: US-ROCHE-1101274

PATIENT
  Sex: Male

DRUGS (11)
  1. ACTIVASE [Suspect]
     Active Substance: ALTEPLASE
     Indication: ANGINA UNSTABLE
     Dosage: IVP (10+50+20+20 MG)
     Route: 042
  2. TYLENOL [Concomitant]
     Active Substance: ACETAMINOPHEN
     Route: 048
  3. NITROGLYCERIN. [Concomitant]
     Active Substance: NITROGLYCERIN
     Route: 065
  4. ACTIVASE [Suspect]
     Active Substance: ALTEPLASE
     Indication: MYOCARDIAL INFARCTION
  5. ASPIRIN. [Concomitant]
     Active Substance: ASPIRIN
     Route: 048
  6. ECOTRIN [Concomitant]
     Active Substance: ASPIRIN
     Route: 048
  7. RESTORIL [Concomitant]
     Active Substance: TEMAZEPAM
     Route: 048
  8. INAPSIN [Concomitant]
     Dosage: 0.25 CC IVP
     Route: 065
  9. HEPARIN LOCK FLUSH [Concomitant]
     Active Substance: HEPARIN SODIUM
  10. NITROGLYCERIN. [Concomitant]
     Active Substance: NITROGLYCERIN
     Route: 065
  11. PEPCID [Concomitant]
     Active Substance: FAMOTIDINE
     Route: 048

REACTIONS (2)
  - Breast pain [Unknown]
  - Pain [Unknown]
